FAERS Safety Report 7772517-3 (Version None)
Quarter: 2011Q3

REPORT INFORMATION
  Report Type: 
  Country: None (occurrence: None)
  Receive Date: 20110922
  Receipt Date: 20110509
  Transmission Date: 20111222
  Serious: No
  Sender: FDA-Public Use
  Company Number: US-ASTRAZENECA-2011SE27158

PATIENT
  Sex: Female

DRUGS (9)
  1. SEROQUEL [Suspect]
     Indication: PANIC ATTACK
     Route: 048
     Dates: start: 20110301
  2. TRICOR [Concomitant]
  3. PAIN PATCHES [Concomitant]
  4. SEROQUEL [Suspect]
     Indication: DEPRESSION
     Route: 048
     Dates: start: 20110301
  5. AMBIEN [Concomitant]
  6. DIOVAN [Concomitant]
  7. PAIN MEDICATION [Concomitant]
     Indication: PROCEDURAL PAIN
  8. VALIUM [Concomitant]
  9. PAXIL [Concomitant]

REACTIONS (2)
  - PANIC ATTACK [None]
  - DRUG DOSE OMISSION [None]
